FAERS Safety Report 7941619-0 (Version None)
Quarter: 2011Q4

REPORT INFORMATION
  Report Type: 
  Country: None (occurrence: None)
  Receive Date: 20111128
  Receipt Date: 20110930
  Transmission Date: 20120403
  Serious: No
  Sender: FDA-Public Use
  Company Number: US-BAYER-2011-095004

PATIENT
  Age: 70 Year
  Sex: Male
  Weight: 99 kg

DRUGS (9)
  1. ALEVE (CAPLET) [Suspect]
     Indication: ARTHRITIS
     Dosage: 2 DF, QD
     Route: 048
     Dates: start: 20010101
  2. PLAVIX [Concomitant]
  3. FISH OIL [Concomitant]
  4. ASPIRIN [Concomitant]
  5. NIASPAN [Concomitant]
  6. SIMVASTATIN [Concomitant]
  7. METOPROLOL TARTRATE [Concomitant]
  8. GLIMEPIRIDE [Concomitant]
  9. JANUMET [Concomitant]

REACTIONS (1)
  - NO ADVERSE EVENT [None]
